FAERS Safety Report 9369676 (Version 1)
Quarter: 2013Q2

REPORT INFORMATION
  Report Type: Report from Study
  Country: JP (occurrence: JP)
  Receive Date: 20130626
  Receipt Date: 20130626
  Transmission Date: 20140414
  Serious: No
  Sender: FDA-Public Use
  Company Number: JP-JNJFOC-20130612458

PATIENT
  Age: 57 Year
  Sex: Male
  Weight: 77 kg

DRUGS (12)
  1. DUROTEP MT [Suspect]
     Indication: PAIN
     Route: 062
     Dates: start: 20110317, end: 20110322
  2. DUROTEP MT [Suspect]
     Indication: PAIN
     Route: 062
     Dates: start: 20110323, end: 20110328
  3. DUROTEP MT [Suspect]
     Indication: PAIN
     Route: 062
     Dates: start: 20110314, end: 20110314
  4. TANATRIL [Concomitant]
     Route: 048
  5. LASIX [Concomitant]
     Route: 048
  6. WARFARIN [Concomitant]
     Route: 048
  7. BEZATOL SR [Concomitant]
     Route: 048
  8. ANCARON [Concomitant]
     Route: 048
  9. ARTIST [Concomitant]
     Route: 048
  10. PROMAC (POLAPREZINC) [Concomitant]
     Route: 048
  11. GLYCORAN [Concomitant]
     Route: 048
  12. ASPARTATE POTASSIUM [Concomitant]
     Route: 048

REACTIONS (5)
  - Blood pressure increased [Recovered/Resolved]
  - Nausea [Recovered/Resolved]
  - Decreased appetite [Recovered/Resolved]
  - Somnolence [Recovered/Resolved]
  - Wrong technique in drug usage process [Unknown]
